FAERS Safety Report 8715666 (Version 3)
Quarter: 2012Q4

REPORT INFORMATION
  Report Type: Report from Study
  Country: KR (occurrence: KR)
  Receive Date: 20120809
  Receipt Date: 20120830
  Transmission Date: 20130627
  Serious: Yes (Death, Hospitalization)
  Sender: FDA-Public Use
  Company Number: KR-BAYER-2012-070696

PATIENT
  Age: 58 Year
  Sex: Female
  Weight: 37 kg

DRUGS (21)
  1. SORAFENIB [Suspect]
     Indication: GASTRIC CANCER
     Dosage: 400 mg, BID
     Dates: start: 20120630, end: 20120714
  2. CISPLATIN [Suspect]
     Indication: GASTRIC CANCER
     Dosage: 118 mg
     Dates: start: 20120308, end: 20120308
  3. CISPLATIN [Suspect]
     Indication: GASTRIC CANCER
     Dosage: 118 mg
     Dates: start: 20120328, end: 20120328
  4. CAPECITABINE [Suspect]
     Indication: GASTRIC CANCER
     Dosage: 2900 mg, QD
     Dates: start: 20120308, end: 20120322
  5. CAPECITABINE [Suspect]
     Indication: GASTRIC CANCER
     Dosage: 2900 mg, QD
     Dates: start: 20120328, end: 20120409
  6. CEFTRIAXONE [Concomitant]
     Indication: INFECTION
     Dosage: UNK
     Dates: start: 20120410, end: 20120411
  7. CEFTRIAXONE [Concomitant]
     Indication: INFECTION
     Dosage: UNK
     Dates: start: 20120411, end: 20120411
  8. AZITHROMYCIN [Concomitant]
     Indication: INFECTION
     Dosage: UNK
     Dates: start: 20120410, end: 20120411
  9. AZITHROMYCIN [Concomitant]
     Indication: INFECTION
     Dosage: UNK
     Dates: start: 20120411, end: 20120411
  10. ENOXAPARIN [Concomitant]
     Indication: PULMONARY EMBOLISM
     Dosage: UNK
     Dates: start: 20120308, end: 20120416
  11. ENOXAPARIN [Concomitant]
     Indication: PULMONARY EMBOLISM
     Dosage: UNK
     Dates: start: 20120422, end: 20120509
  12. ENOXAPARIN [Concomitant]
     Indication: PULMONARY EMBOLISM
     Dosage: UNK
     Dates: start: 20120802, end: 20120803
  13. PIPERACILLIN W/TAZOBACTAM [Concomitant]
     Indication: INFECTION
     Dosage: UNK
     Dates: start: 20120411, end: 20120414
  14. LEVOFLOXACIN [Concomitant]
     Indication: INFECTION
     Dosage: UNK
     Dates: start: 20120411, end: 20120414
  15. AMBROXOL [Concomitant]
     Indication: PNEUMONIA
     Dosage: UNK
     Dates: start: 20120414, end: 20120418
  16. ACETYLCYSTEINE [Concomitant]
     Indication: PNEUMONIA
     Dosage: UNK
     Dates: start: 20120415, end: 20120421
  17. MEROPENEM [Concomitant]
     Indication: INFECTION
     Dosage: UNK
     Dates: start: 20120415, end: 20120420
  18. BROMHEXIN [Concomitant]
     Indication: PNEUMONIA
     Dosage: UNK
     Dates: start: 20120419, end: 20120502
  19. MOXIFLOXACIN [Concomitant]
     Indication: INFECTION
     Dosage: UNK
     Dates: start: 20120420, end: 20120510
  20. NYSTATIN [Concomitant]
     Indication: INFECTION
     Dosage: UNK
     Dates: start: 20120411, end: 20120424
  21. NYSTATIN [Concomitant]
     Indication: INFECTION
     Dosage: UNK
     Dates: start: 20120502, end: 20120510

REACTIONS (2)
  - Lung infection [Fatal]
  - Fanconi syndrome [Not Recovered/Not Resolved]
